FAERS Safety Report 14250629 (Version 1)
Quarter: 2017Q4

REPORT INFORMATION
  Report Type: Spontaneous
  Country: US (occurrence: US)
  Receive Date: 20171205
  Receipt Date: 20171205
  Transmission Date: 20180321
  Serious: No
  Sender: FDA-Public Use
  Company Number: US-ENDO PHARMACEUTICALS INC-2017-004446

PATIENT
  Age: 35 Year
  Sex: Female
  Weight: 56.7 kg

DRUGS (4)
  1. ALPRAZOLAM TABLETS 2 MG [Suspect]
     Active Substance: ALPRAZOLAM
     Indication: ANXIETY DISORDER
  2. ALPRAZOLAM TABLETS 2 MG [Suspect]
     Active Substance: ALPRAZOLAM
     Indication: PANIC DISORDER
  3. ZOLOFT [Concomitant]
     Active Substance: SERTRALINE HYDROCHLORIDE
     Indication: PRODUCT USED FOR UNKNOWN INDICATION
  4. ALPRAZOLAM TABLETS 2 MG [Suspect]
     Active Substance: ALPRAZOLAM
     Indication: INSOMNIA
     Dosage: 1 DF, TID
     Route: 065
     Dates: start: 20170714

REACTIONS (9)
  - Nightmare [Unknown]
  - Drug dispensing error [Unknown]
  - Unevaluable event [Unknown]
  - Somnolence [Unknown]
  - Mood swings [Unknown]
  - Muscle tightness [Unknown]
  - Withdrawal syndrome [Not Recovered/Not Resolved]
  - Gastric disorder [Not Recovered/Not Resolved]
  - Dyspepsia [Unknown]

NARRATIVE: CASE EVENT DATE: 201707
